FAERS Safety Report 24078772 (Version 2)
Quarter: 2024Q3

REPORT INFORMATION
  Report Type: Other
  Country: AU (occurrence: AU)
  Receive Date: 20240711
  Receipt Date: 20240715
  Transmission Date: 20241017
  Serious: Yes (Hospitalization, Congenital Anomaly, Other)
  Sender: DEXCEL
  Company Number: AU-DEXPHARM-2024-2297

PATIENT

DRUGS (4)
  1. CLONAZEPAM [Suspect]
     Active Substance: CLONAZEPAM
  2. LEVETIRACETAM [Suspect]
     Active Substance: LEVETIRACETAM
  3. ZONISAMIDE [Suspect]
     Active Substance: ZONISAMIDE
  4. LACOSAMIDE [Suspect]
     Active Substance: LACOSAMIDE

REACTIONS (2)
  - Tuberous sclerosis complex [Unknown]
  - Foetal exposure during pregnancy [Unknown]
